FAERS Safety Report 13942865 (Version 1)
Quarter: 2017Q3

REPORT INFORMATION
  Report Type: Spontaneous
  Country: US (occurrence: US)
  Receive Date: 20170907
  Receipt Date: 20170907
  Transmission Date: 20171127
  Serious: Yes (Life-Threatening, Other)
  Sender: FDA-Public Use
  Company Number: None

PATIENT
  Age: 51 Year
  Sex: Female
  Weight: 86.4 kg

DRUGS (7)
  1. VITAMIN D3 [Concomitant]
     Active Substance: CHOLECALCIFEROL
  2. ZESTRIL [Suspect]
     Active Substance: LISINOPRIL
     Indication: HYPERTENSION
     Dosage: ?          QUANTITY:1 TABLET(S);?
     Route: 048
     Dates: start: 20110510, end: 20170906
  3. COREG [Concomitant]
     Active Substance: CARVEDILOL
  4. NORVASC [Concomitant]
     Active Substance: AMLODIPINE BESYLATE
  5. TRIMOX (AMOXICILLIN-HYDRO) [Concomitant]
  6. METHYLPREDNISOLONE. [Concomitant]
     Active Substance: METHYLPREDNISOLONE
  7. DIPHENHYDRAM (BENADRYL) [Concomitant]

REACTIONS (4)
  - Gingival pain [None]
  - Toothache [None]
  - Lip swelling [None]
  - Swelling face [None]

NARRATIVE: CASE EVENT DATE: 20170906
